FAERS Safety Report 13630939 (Version 2)
Quarter: 2018Q1

REPORT INFORMATION
  Report Type: Spontaneous
  Country: US (occurrence: US)
  Receive Date: 20170608
  Receipt Date: 20180131
  Transmission Date: 20180508
  Serious: Yes (Hospitalization, Other)
  Sender: FDA-Public Use
  Company Number: US-MYLANLABS-2017M1034305

PATIENT
  Age: 60 Year
  Sex: Male

DRUGS (6)
  1. FLUPHENAZINE [Suspect]
     Active Substance: FLUPHENAZINE
     Indication: SCHIZOPHRENIA
     Route: 065
  2. ARIPIPRAZOLE. [Suspect]
     Active Substance: ARIPIPRAZOLE
     Indication: SCHIZOPHRENIA
     Route: 065
  3. OLANZAPINE. [Suspect]
     Active Substance: OLANZAPINE
     Indication: SCHIZOPHRENIA
     Route: 065
  4. RISPERIDONE. [Suspect]
     Active Substance: RISPERIDONE
     Indication: SCHIZOPHRENIA
     Route: 065
  5. HALOPERIDOL. [Suspect]
     Active Substance: HALOPERIDOL
     Indication: SCHIZOPHRENIA
     Dosage: 500 MG NIGHTLY (5 TABLETS OF 100 MG EACH)
     Route: 048
  6. CLOZAPINE. [Suspect]
     Active Substance: CLOZAPINE
     Indication: SCHIZOPHRENIA
     Dosage: 500 MG NIGHTLY (5 TABLETS OF 100 MG EACH)
     Route: 048
     Dates: start: 201502

REACTIONS (7)
  - Parkinsonism [Recovering/Resolving]
  - Pulmonary embolism [Recovering/Resolving]
  - Accidental overdose [Recovering/Resolving]
  - Drug dispensing error [Recovering/Resolving]
  - Electrocardiogram QT prolonged [Recovering/Resolving]
  - Delirium [Recovering/Resolving]
  - Bundle branch block left [Recovering/Resolving]
